FAERS Safety Report 14188648 (Version 1)
Quarter: 2017Q4

REPORT INFORMATION
  Report Type: Spontaneous
  Country: US (occurrence: US)
  Receive Date: 20171114
  Receipt Date: 20171114
  Transmission Date: 20180321
  Serious: No
  Sender: FDA-Public Use
  Company Number: US-ACTELION-A-NJ2017-162536

PATIENT
  Age: 28 Year
  Sex: Female

DRUGS (2)
  1. TRACLEER [Suspect]
     Active Substance: BOSENTAN
     Indication: PULMONARY ARTERIAL HYPERTENSION
     Dosage: 125 MG, BID
     Route: 048
     Dates: start: 20141119
  2. OXYGEN. [Concomitant]
     Active Substance: OXYGEN

REACTIONS (4)
  - Nasopharyngitis [Unknown]
  - Drug dose omission [Unknown]
  - Dyspnoea [Unknown]
  - Unevaluable event [Unknown]

NARRATIVE: CASE EVENT DATE: 20171102
